FAERS Safety Report 21878856 (Version 4)
Quarter: 2023Q2

REPORT INFORMATION
  Report Type: Spontaneous
  Country: US (occurrence: US)
  Receive Date: 20230118
  Receipt Date: 20230412
  Transmission Date: 20230721
  Serious: Yes (Hospitalization)
  Sender: FDA-Public Use
  Company Number: US-PFIZER INC-PV202300008966

PATIENT
  Age: 94 Year
  Sex: Female
  Weight: 47.619 kg

DRUGS (6)
  1. IBRANCE [Suspect]
     Active Substance: PALBOCICLIB
     Indication: Breast cancer metastatic
     Dosage: 100 MG
     Dates: start: 2021
  2. LETROZOLE [Concomitant]
     Active Substance: LETROZOLE
     Dosage: UNK
  3. CARVEDILOL [Concomitant]
     Active Substance: CARVEDILOL
     Dosage: UNK
  4. PRAMIPEXOLE [Concomitant]
     Active Substance: PRAMIPEXOLE
     Dosage: UNK
  5. TIMOLOL [Concomitant]
     Active Substance: TIMOLOL
     Dosage: UNK (OPHTHALMIC SOLUTION USP)
  6. LATANOPROST [Concomitant]
     Active Substance: LATANOPROST
     Dosage: UNK (OPHTHALMIC SOLUTION125 MCG/2.5 ML)

REACTIONS (1)
  - Fall [Recovered/Resolved]
